FAERS Safety Report 19818209 (Version 1)
Quarter: 2021Q3

REPORT INFORMATION
  Report Type: Spontaneous
  Country: FR (occurrence: FR)
  Receive Date: 20210911
  Receipt Date: 20210911
  Transmission Date: 20211014
  Serious: Yes (Hospitalization)
  Sender: FDA-Public Use
  Company Number: FR-TEVA-2021-FR-1950713

PATIENT
  Age: 64 Year
  Sex: Male
  Weight: 63 kg

DRUGS (7)
  1. BISOPROLOL (FUMARATE ACIDE DE) [Concomitant]
     Active Substance: BISOPROLOL FUMARATE
  2. CARBOPLATINE [Suspect]
     Active Substance: CARBOPLATIN
     Indication: LARYNGEAL CANCER
     Dosage: 485 MG
     Route: 042
     Dates: start: 20210716
  3. AMIODARONE [Concomitant]
     Active Substance: AMIODARONE
  4. ROSUVASTATINE [Concomitant]
     Active Substance: ROSUVASTATIN
  5. KEYTRUDA [Suspect]
     Active Substance: PEMBROLIZUMAB
     Indication: LARYNGEAL CANCER
     Dosage: 200 MG
     Route: 042
     Dates: start: 20210716
  6. PREVISCAN [Concomitant]
  7. FLUOROURACILE [Suspect]
     Active Substance: FLUOROURACIL
     Indication: LARYNGEAL CANCER
     Dosage: 6800 MG
     Route: 042
     Dates: start: 20210716, end: 20210719

REACTIONS (1)
  - Acute coronary syndrome [Recovering/Resolving]

NARRATIVE: CASE EVENT DATE: 20210719
